FAERS Safety Report 10029802 (Version 2)
Quarter: 2014Q2

REPORT INFORMATION
  Report Type: Spontaneous
  Country: US (occurrence: None)
  Receive Date: 20140320
  Receipt Date: 20140612
  Transmission Date: 20141212
  Serious: Yes (Death)
  Sender: FDA-Public Use
  Company Number: 1713747-2014-99924

PATIENT
  Sex: Male

DRUGS (3)
  1. DELFLEX [Suspect]
     Indication: PERITONEAL DIALYSIS
  2. LIBERTY CYCLER [Concomitant]
  3. PD CYCLER SET [Concomitant]

REACTIONS (1)
  - Pain [None]
